FAERS Safety Report 9055549 (Version 2)
Quarter: 2013Q1

REPORT INFORMATION
  Report Type: Spontaneous
  Country: CA (occurrence: CA)
  Receive Date: 20130206
  Receipt Date: 20130226
  Transmission Date: 20140127
  Serious: Yes (Other)
  Sender: FDA-Public Use
  Company Number: CA-ABBOTT-13P-028-1044855-00

PATIENT
  Sex: Female

DRUGS (6)
  1. BIAXIN [Suspect]
     Indication: PHARYNGITIS
     Dates: start: 20090804
  2. YASMIN [Concomitant]
     Indication: CONTRACEPTION
  3. XYLOCAINE [Concomitant]
     Indication: ABORTION INDUCED
     Dates: start: 20110217
  4. FENTANYL [Concomitant]
     Indication: ABORTION INDUCED
     Dates: start: 20110917
  5. SUBLIMAZE [Concomitant]
     Indication: ABORTION INDUCED
     Route: 042
     Dates: start: 20110917
  6. VERSED [Concomitant]
     Route: 042
     Dates: start: 20110917

REACTIONS (18)
  - Abortion induced [Unknown]
  - Paranoia [Recovered/Resolved]
  - Hallucination [Recovered/Resolved]
  - Anxiety [Recovered/Resolved]
  - Suicidal ideation [Recovered/Resolved]
  - Mental disorder [Recovered/Resolved]
  - Nightmare [Recovered/Resolved]
  - Sensory disturbance [Recovered/Resolved]
  - Injury [Unknown]
  - Fall [Unknown]
  - Nausea [Unknown]
  - Breast swelling [Unknown]
  - Fatigue [Unknown]
  - Menstruation irregular [Unknown]
  - Dysmenorrhoea [Unknown]
  - Premenstrual syndrome [Unknown]
  - Nausea [Unknown]
  - Fatigue [Unknown]
